FAERS Safety Report 6182629-6 (Version None)
Quarter: 2009Q2

REPORT INFORMATION
  Report Type: 
  Country: None (occurrence: None)
  Receive Date: 20090507
  Receipt Date: 20090506
  Transmission Date: 20091009
  Serious: Yes (Other)
  Sender: FDA-Public Use
  Company Number: A0782761A

PATIENT
  Age: 62 Year
  Sex: Male

DRUGS (1)
  1. NICODERM CQ [Suspect]
     Indication: SMOKING CESSATION THERAPY
     Route: 062

REACTIONS (5)
  - ABNORMAL DREAMS [None]
  - HALLUCINATION [None]
  - ILL-DEFINED DISORDER [None]
  - NICOTINE DEPENDENCE [None]
  - TACHYPNOEA [None]
